FAERS Safety Report 10646103 (Version 2)
Quarter: 2015Q1

REPORT INFORMATION
  Report Type: Spontaneous
  Country: US (occurrence: US)
  Receive Date: 20141211
  Receipt Date: 20150122
  Transmission Date: 20150720
  Serious: Yes (Hospitalization)
  Sender: FDA-Public Use
  Company Number: US-ACTELION-A-US2014-109228

PATIENT
  Age: 6 Year
  Sex: Female

DRUGS (15)
  1. PULMICORT TURBUHALER [Concomitant]
     Active Substance: BUDESONIDE
  2. MIRALAX [Concomitant]
     Active Substance: POLYETHYLENE GLYCOL 3350
  3. TYLENOL [Concomitant]
     Active Substance: ACETAMINOPHEN
  4. POLYVIT [Concomitant]
     Active Substance: MINERALS\VITAMINS
  5. TEGRETOL [Concomitant]
     Active Substance: CARBAMAZEPINE
  6. MOTRIN [Concomitant]
     Active Substance: IBUPROFEN
  7. VITAMIN B6 [Concomitant]
     Active Substance: PYRIDOXINE HYDROCHLORIDE
  8. ZAVESCA [Suspect]
     Active Substance: MIGLUSTAT
     Dosage: 200 MG, BID
     Route: 048
     Dates: start: 20100929
  9. SALINE [Concomitant]
     Active Substance: SODIUM CHLORIDE
  10. ALBUTEROL. [Concomitant]
     Active Substance: ALBUTEROL
  11. PREVACID [Concomitant]
     Active Substance: LANSOPRAZOLE
  12. KEPPRA [Concomitant]
     Active Substance: LEVETIRACETAM
  13. ZAVESCA [Suspect]
     Active Substance: MIGLUSTAT
     Indication: GAUCHER^S DISEASE
     Dosage: 100 UNK, UNK
     Route: 048
     Dates: start: 201009
  14. TRIAMCINOLONE [Concomitant]
     Active Substance: TRIAMCINOLONE
  15. FLONASE [Concomitant]
     Active Substance: FLUTICASONE PROPIONATE

REACTIONS (1)
  - Pneumonia aspiration [Recovered/Resolved]

NARRATIVE: CASE EVENT DATE: 20141004
